FAERS Safety Report 5787085-5 (Version None)
Quarter: 2008Q2

REPORT INFORMATION
  Report Type: 
  Country: None (occurrence: None)
  Receive Date: 20080623
  Receipt Date: 20080623
  Transmission Date: 20081010
  Serious: No
  Sender: FDA-Public Use
  Company Number: None

PATIENT
  Sex: Male
  Weight: 72.5755 kg

DRUGS (1)
  1. METRONIDAZOLE [Suspect]
     Indication: GASTROENTERITIS
     Dosage: 500MG IV IV DRIP
     Route: 041
     Dates: start: 20080617, end: 20080617

REACTIONS (2)
  - PRURITUS [None]
  - RASH [None]
